FAERS Safety Report 9113457 (Version 3)
Quarter: 2014Q2

REPORT INFORMATION
  Report Type: Spontaneous
  Country: US (occurrence: US)
  Receive Date: 20130129
  Receipt Date: 20140512
  Transmission Date: 20141212
  Serious: No
  Sender: FDA-Public Use
  Company Number: US-009507513-1301USA012075

PATIENT
  Sex: Male

DRUGS (1)
  1. PROPECIA [Suspect]
     Indication: ANDROGENETIC ALOPECIA
     Dosage: 1 MG, UNK
     Route: 048
     Dates: start: 20061005, end: 20100526

REACTIONS (5)
  - Cognitive disorder [Not Recovered/Not Resolved]
  - Sexual dysfunction [Not Recovered/Not Resolved]
  - Erectile dysfunction [Unknown]
  - Libido decreased [Unknown]
  - Hypersensitivity [Unknown]
